FAERS Safety Report 13486081 (Version 1)
Quarter: 2017Q2

REPORT INFORMATION
  Report Type: Not Available
  Country: None (occurrence: US)
  Receive Date: 20170426
  Receipt Date: 20170426
  Transmission Date: 20170830
  Serious: No
  Sender: FDA-Public Use
  Company Number: US-AKORN-54277

PATIENT
  Age: 72 Year
  Sex: Female

DRUGS (1)
  1. BETIMOL [Suspect]
     Active Substance: TIMOLOL

REACTIONS (7)
  - Drug ineffective [None]
  - Photophobia [None]
  - Keratitis [None]
  - Foreign body sensation in eyes [None]
  - Eye irritation [None]
  - Eye pruritus [None]
  - Dry eye [None]
